FAERS Safety Report 25374549 (Version 1)
Quarter: 2025Q2

REPORT INFORMATION
  Report Type: Spontaneous
  Country: US (occurrence: US)
  Receive Date: 20250529
  Receipt Date: 20250529
  Transmission Date: 20250717
  Serious: Yes (Death, Hospitalization, Other)
  Sender: BIOVITRUM
  Company Number: US-BIOVITRUM-2025-US-007376

PATIENT
  Age: 16 Year
  Sex: Female

DRUGS (1)
  1. EMAPALUMAB [Suspect]
     Active Substance: EMAPALUMAB
     Indication: Haemophagocytic lymphohistiocytosis

REACTIONS (3)
  - Multiple organ dysfunction syndrome [Fatal]
  - Systemic candida [Fatal]
  - Off label use [Unknown]
